FAERS Safety Report 15674322 (Version 3)
Quarter: 2019Q1

REPORT INFORMATION
  Report Type: Spontaneous
  Country: US (occurrence: US)
  Receive Date: 20181130
  Receipt Date: 20190214
  Transmission Date: 20190417
  Serious: Yes (Other)
  Sender: FDA-Public Use
  Company Number: US-UCBSA-2018052310

PATIENT
  Age: 63 Year
  Sex: Female
  Weight: 161 kg

DRUGS (2)
  1. CIMZIA [Suspect]
     Active Substance: CERTOLIZUMAB PEGOL
     Indication: PSORIATIC ARTHROPATHY
     Dosage: UNKNOWN DOSE
     Route: 058
     Dates: start: 2018, end: 2018
  2. CIMZIA [Suspect]
     Active Substance: CERTOLIZUMAB PEGOL
     Dosage: 400 MG, EV 4 WEEKS
     Route: 058
     Dates: start: 20181022, end: 201812

REACTIONS (5)
  - Respiratory disorder [Recovered/Resolved]
  - Joint swelling [Not Recovered/Not Resolved]
  - Cough [Recovered/Resolved]
  - Psoriasis [Recovered/Resolved]
  - Dyspnoea [Recovered/Resolved]

NARRATIVE: CASE EVENT DATE: 201810
